FAERS Safety Report 8154016-2 (Version None)
Quarter: 2012Q1

REPORT INFORMATION
  Report Type: 
  Country: None (occurrence: None)
  Receive Date: 20120221
  Receipt Date: 20120221
  Transmission Date: 20120608
  Serious: Yes (Hospitalization)
  Sender: FDA-Public Use
  Company Number: None

PATIENT
  Age: 50 Year
  Sex: Female
  Weight: 83.914 kg

DRUGS (1)
  1. PHENYTOIN [Suspect]
     Indication: EPILEPSY
     Dosage: 3
     Route: 048
     Dates: start: 20111215, end: 20120315

REACTIONS (3)
  - CONVULSION [None]
  - PRODUCT SUBSTITUTION ISSUE [None]
  - ANTICONVULSANT DRUG LEVEL BELOW THERAPEUTIC [None]
